FAERS Safety Report 9748202 (Version 3)
Quarter: 2013Q4

REPORT INFORMATION
  Report Type: Spontaneous
  Country: JP (occurrence: JP)
  Receive Date: 20131212
  Receipt Date: 20131225
  Transmission Date: 20140711
  Serious: Yes (Other)
  Sender: FDA-Public Use
  Company Number: JP-009507513-1311JPN006780

PATIENT
  Age: 40 Year
  Sex: Male

DRUGS (2)
  1. PROPECIA TABLETS 0.2MG [Suspect]
     Indication: ANDROGENETIC ALOPECIA
     Dosage: 1 MG, QD
     Route: 048
     Dates: start: 20130329, end: 20130822
  2. PROPECIA TABLETS 0.2MG [Suspect]
     Dosage: 1 MG, QD
     Route: 048
     Dates: start: 20131011, end: 20131031

REACTIONS (2)
  - Hepatic function abnormal [Recovered/Resolved]
  - Hepatic function abnormal [Not Recovered/Not Resolved]
